FAERS Safety Report 5151799-0 (Version None)
Quarter: 2006Q4

REPORT INFORMATION
  Report Type: 
  Country: None (occurrence: None)
  Receive Date: 20061115
  Receipt Date: 20061107
  Transmission Date: 20070319
  Serious: Yes (Hospitalization)
  Sender: FDA-Public Use
  Company Number: DK-BOEHRINGER INGELHEIM PHARMACEUTICALS, INC.-2006-SW-00453DB

PATIENT
  Sex: Male
  Weight: 87 kg

DRUGS (1)
  1. SIFROL TAB. 0.18 MG [Suspect]
     Indication: RESTLESS LEGS SYNDROME
     Route: 048
     Dates: start: 20060619, end: 20060619

REACTIONS (4)
  - ANGINA PECTORIS [None]
  - ANXIETY [None]
  - DIZZINESS [None]
  - HYPERHIDROSIS [None]
